FAERS Safety Report 13045566 (Version 1)
Quarter: 2016Q4

REPORT INFORMATION
  Report Type: Spontaneous
  Country: US (occurrence: US)
  Receive Date: 20161220
  Receipt Date: 20161220
  Transmission Date: 20170207
  Serious: Yes (Life-Threatening, Disabling, Other)
  Sender: FDA-Public Use
  Company Number: None

PATIENT
  Age: 68 Year
  Sex: Male

DRUGS (10)
  1. COPAXONE [Suspect]
     Active Substance: GLATIRAMER ACETATE
     Indication: MULTIPLE SCLEROSIS
     Dosage: ROUTE - INJECTION
  2. LEVETIRACETAM. [Concomitant]
     Active Substance: LEVETIRACETAM
  3. VITAMIN B12 [Concomitant]
     Active Substance: CYANOCOBALAMIN
  4. GLIPIZIDE. [Concomitant]
     Active Substance: GLIPIZIDE
  5. HYDROCODONE [Concomitant]
     Active Substance: HYDROCODONE
  6. VITAMIN D [Concomitant]
     Active Substance: CHOLECALCIFEROL
  7. JANUVIA [Concomitant]
     Active Substance: SITAGLIPTIN PHOSPHATE
  8. DIAZEPAM. [Concomitant]
     Active Substance: DIAZEPAM
  9. ASPIRIN. [Concomitant]
     Active Substance: ASPIRIN
  10. PIOGLITAZONE. [Concomitant]
     Active Substance: PIOGLITAZONE

REACTIONS (3)
  - Wound [None]
  - Injection site infection [None]
  - Injection site urticaria [None]

NARRATIVE: CASE EVENT DATE: 20160922
